FAERS Safety Report 7640078-5 (Version None)
Quarter: 2011Q3

REPORT INFORMATION
  Report Type: 
  Country: None (occurrence: None)
  Receive Date: 20110727
  Receipt Date: 20110714
  Transmission Date: 20111222
  Serious: Yes (Hospitalization, Other)
  Sender: FDA-Public Use
  Company Number: US-ELI_LILLY_AND_COMPANY-US201107005443

PATIENT
  Age: 88 Year
  Sex: Female

DRUGS (8)
  1. FORTEO [Suspect]
     Indication: OSTEOPOROSIS
     Dosage: 20 UG, QD
     Dates: start: 20110521
  2. TENORMIN [Concomitant]
     Indication: HEART RATE INCREASED
  3. DIOVAN [Concomitant]
     Dosage: 160 MG, QD
  4. LASIX [Concomitant]
     Indication: OEDEMA PERIPHERAL
     Dosage: 40 MG, QD
  5. GLUCOTROL XL [Concomitant]
  6. OSCAL                              /00108001/ [Concomitant]
  7. VITAMIN D [Concomitant]
  8. COUMADIN [Concomitant]
     Indication: THROMBOSIS

REACTIONS (9)
  - WOUND INFECTION STAPHYLOCOCCAL [None]
  - ACARODERMATITIS [None]
  - THROMBOSIS [None]
  - RASH [None]
  - HEARING IMPAIRED [None]
  - WALKING AID USER [None]
  - PULMONARY EMBOLISM [None]
  - OEDEMA PERIPHERAL [None]
  - WOUND DRAINAGE [None]
